FAERS Safety Report 9319819 (Version 2)
Quarter: 2013Q2

REPORT INFORMATION
  Report Type: Spontaneous
  Country: GB (occurrence: GB)
  Receive Date: 20130530
  Receipt Date: 20130607
  Transmission Date: 20140414
  Serious: Yes (Other)
  Sender: FDA-Public Use
  Company Number: GB-BAYER-2013-064699

PATIENT
  Sex: Female

DRUGS (3)
  1. NEXAVAR [Suspect]
     Indication: THYROID CANCER
     Dosage: UNK
     Route: 048
     Dates: start: 201301
  2. BISOPROLOL [Concomitant]
  3. WARFARIN [Concomitant]

REACTIONS (6)
  - Atrial fibrillation [None]
  - Metastases to thorax [None]
  - Off label use [None]
  - Raynaud^s phenomenon [None]
  - Palpitations [None]
  - Spinal pain [None]
